FAERS Safety Report 4656649-4 (Version None)
Quarter: 2005Q2

REPORT INFORMATION
  Report Type: 
  Country: None (occurrence: None)
  Receive Date: 20050506
  Receipt Date: 20050428
  Transmission Date: 20051028
  Serious: Yes (Hospitalization, Other)
  Sender: FDA-Public Use
  Company Number: 200510242BFR

PATIENT
  Age: 83 Year
  Sex: Male

DRUGS (17)
  1. CIPROFLOXACIN HCL [Suspect]
     Indication: PROSTATITIS
     Dosage: INTRAVENOUS
     Route: 042
     Dates: start: 20041025, end: 20041108
  2. CIPROFLOXACIN HCL [Suspect]
     Indication: URINARY TRACT INFECTION
     Dosage: INTRAVENOUS
     Route: 042
     Dates: start: 20041025, end: 20041108
  3. BACTRIM [Suspect]
     Indication: PROSTATITIS
     Dosage: QD, ORAL
     Route: 048
     Dates: start: 20041025, end: 20041108
  4. BACTRIM [Suspect]
     Indication: URINARY TRACT INFECTION
     Dosage: QD, ORAL
     Route: 048
     Dates: start: 20041025, end: 20041108
  5. PREVISCAN [Concomitant]
  6. LOVENOX [Concomitant]
  7. LEDERFOLIN [Concomitant]
  8. ROCEPHIN [Concomitant]
  9. OFLOCET [Concomitant]
  10. COZAAR [Concomitant]
  11. MODOPAR [Concomitant]
  12. MOPRAL [Concomitant]
  13. LASILIX [Concomitant]
  14. KALEORID [Concomitant]
  15. TRINITRINE [Concomitant]
  16. XALATAN [Concomitant]
  17. LEDERFOLIN [Concomitant]

REACTIONS (11)
  - BALANCE DISORDER [None]
  - BONE MARROW DEPRESSION [None]
  - CARDIAC FAILURE [None]
  - GENERAL PHYSICAL HEALTH DETERIORATION [None]
  - HYPERTENSION [None]
  - LEUKOCYTURIA [None]
  - LYMPHOEDEMA [None]
  - PHLEBITIS [None]
  - PYREXIA [None]
  - RENAL FAILURE [None]
  - RESPIRATORY TRACT CONGESTION [None]
